FAERS Safety Report 6613109-9 (Version None)
Quarter: 2010Q1

REPORT INFORMATION
  Report Type: 
  Country: None (occurrence: None)
  Receive Date: 20100223
  Receipt Date: 20100211
  Transmission Date: 20100710
  Serious: Yes (Hospitalization, Other)
  Sender: FDA-Public Use
  Company Number: JHP201000052

PATIENT
  Age: 13 Year
  Sex: Female

DRUGS (12)
  1. COLY-MYCIN M [Suspect]
     Indication: BACTERIAL INFECTION
     Dosage: SEE IMAGE
     Route: 042
  2. COLY-MYCIN M [Suspect]
     Indication: MULTIPLE-DRUG RESISTANCE
     Dosage: SEE IMAGE
     Route: 042
  3. COLY-MYCIN M [Suspect]
     Indication: BACTERIAL INFECTION
     Dosage: SEE IMAGE
     Route: 042
  4. COLY-MYCIN M [Suspect]
     Indication: MULTIPLE-DRUG RESISTANCE
     Dosage: SEE IMAGE
     Route: 042
  5. COLY-MYCIN M [Suspect]
     Indication: BACTERIAL INFECTION
     Dosage: SEE IMAGE
     Route: 042
  6. COLY-MYCIN M [Suspect]
     Indication: MULTIPLE-DRUG RESISTANCE
     Dosage: SEE IMAGE
     Route: 042
  7. GENTAMICIN [Suspect]
     Indication: BACTERIAL INFECTION
  8. TIGECYCLINE (TIGECYCLINE) [Concomitant]
  9. AMIKACIN SULFATE [Concomitant]
  10. TEICOPLANIN (TEICOPLANIN) [Concomitant]
  11. CLOXACILLIN BENZATHINE [Concomitant]
  12. FLUCONAZOLE [Concomitant]

REACTIONS (3)
  - DRUG INTERACTION [None]
  - MULTI-ORGAN FAILURE [None]
  - RENAL FAILURE ACUTE [None]
